FAERS Safety Report 9822768 (Version 1)
Quarter: 2014Q1

REPORT INFORMATION
  Report Type: Spontaneous
  Country: US (occurrence: US)
  Receive Date: 20140116
  Receipt Date: 20140116
  Transmission Date: 20141002
  Serious: No
  Sender: FDA-Public Use
  Company Number: US-ALLERGAN-1300010US

PATIENT
  Age: 68 Year
  Sex: Female

DRUGS (6)
  1. REFRESH OPTIVE SENSITIVE [Suspect]
     Indication: POSTOPERATIVE CARE
     Dosage: UNK
     Route: 047
     Dates: start: 201212
  2. PREDNISOLONE ACETATE, 1.0% [Suspect]
     Indication: PRODUCT USED FOR UNKNOWN INDICATION
     Dosage: 2 GTT, BID
     Route: 047
     Dates: start: 201211
  3. PREDNISOLONE ACETATE, 1.0% [Suspect]
     Dosage: 2 GTT, TID
     Route: 047
     Dates: start: 201211
  4. HYDROCHLOROTHIAZIDE [Concomitant]
     Indication: BLOOD PRESSURE
     Dosage: 25 MG, QD
     Route: 048
  5. NOVANAC [Concomitant]
     Indication: PRODUCT USED FOR UNKNOWN INDICATION
     Route: 047
  6. ALLERGY SHOTS NOS [Concomitant]
     Indication: SEASONAL ALLERGY
     Dosage: EVERY FRIDAY

REACTIONS (3)
  - Local swelling [Unknown]
  - Eye irritation [Recovered/Resolved]
  - Vision blurred [Recovered/Resolved]
